FAERS Safety Report 12250390 (Version 1)
Quarter: 2016Q2

REPORT INFORMATION
  Report Type: Spontaneous
  Country: BR (occurrence: BR)
  Receive Date: 20160408
  Receipt Date: 20160408
  Transmission Date: 20160815
  Serious: Yes (Death, Hospitalization)
  Sender: FDA-Public Use
  Company Number: PHHY2016BR038186

PATIENT
  Age: 66 Year
  Sex: Male
  Weight: 53 kg

DRUGS (8)
  1. AZITHROMYCIN ANHYDROUS. [Concomitant]
     Active Substance: AZITHROMYCIN ANHYDROUS
     Indication: BRONCHITIS
  2. CATAFLAM [Suspect]
     Active Substance: DICLOFENAC POTASSIUM
     Indication: PAIN
     Dosage: UNK UNK, QD
     Route: 048
  3. CATAFLAM [Suspect]
     Active Substance: DICLOFENAC POTASSIUM
     Indication: PYREXIA
  4. FORASEQ [Suspect]
     Active Substance: BUDESONIDE\FORMOTEROL FUMARATE
     Indication: BRONCHITIS
  5. AZITHROMYCIN ANHYDROUS. [Concomitant]
     Active Substance: AZITHROMYCIN ANHYDROUS
     Indication: ASTHMA
     Dosage: UNK UNK, Q12H
     Route: 048
  6. AZITHROMYCIN ANHYDROUS. [Concomitant]
     Active Substance: AZITHROMYCIN ANHYDROUS
     Indication: PNEUMONIA
  7. FORASEQ [Suspect]
     Active Substance: BUDESONIDE\FORMOTEROL FUMARATE
     Indication: ASTHMA
     Dosage: UNK UNK, TID
     Route: 055
  8. FORASEQ [Suspect]
     Active Substance: BUDESONIDE\FORMOTEROL FUMARATE
     Indication: PNEUMONIA

REACTIONS (6)
  - Bronchitis [Unknown]
  - Respiratory failure [Fatal]
  - Malaise [Not Recovered/Not Resolved]
  - Myocardial infarction [Unknown]
  - Weight decreased [Not Recovered/Not Resolved]
  - Abdominal discomfort [Not Recovered/Not Resolved]

NARRATIVE: CASE EVENT DATE: 20160401
